FAERS Safety Report 10920961 (Version 1)
Quarter: 2015Q1

REPORT INFORMATION
  Report Type: Spontaneous
  Country: US (occurrence: US)
  Receive Date: 20150317
  Receipt Date: 20150317
  Transmission Date: 20150721
  Serious: Yes (Disabling, Other)
  Sender: FDA-Public Use
  Company Number: US-SA-2015SA031931

PATIENT
  Sex: Female

DRUGS (2)
  1. SOLOSTAR [Concomitant]
     Active Substance: DEVICE
     Indication: TYPE 1 DIABETES MELLITUS
     Dates: start: 2007
  2. LANTUS SOLOSTAR [Suspect]
     Active Substance: INSULIN GLARGINE
     Indication: TYPE 1 DIABETES MELLITUS
     Dosage: DOSE: 25U QAM + 15-20U QPM
     Route: 065
     Dates: start: 2007

REACTIONS (7)
  - Disturbance in attention [Unknown]
  - Cerebrovascular accident [Unknown]
  - Immobile [Unknown]
  - Memory impairment [Unknown]
  - General physical health deterioration [Unknown]
  - Visual acuity reduced [Unknown]
  - Drug administration error [Unknown]

NARRATIVE: CASE EVENT DATE: 2007
